FAERS Safety Report 24954453 (Version 1)
Quarter: 2025Q1

REPORT INFORMATION
  Report Type: Spontaneous
  Country: US (occurrence: US)
  Receive Date: 20250211
  Receipt Date: 20250211
  Transmission Date: 20250408
  Serious: No
  Sender: ELI LILLY AND COMPANY
  Company Number: US-ELI_LILLY_AND_COMPANY-US202502006815

PATIENT
  Age: 82 Year
  Sex: Female

DRUGS (1)
  1. TRULICITY [Suspect]
     Active Substance: DULAGLUTIDE
     Indication: Diabetes mellitus
     Route: 058

REACTIONS (6)
  - Injury associated with device [Unknown]
  - Injection site bruising [Unknown]
  - Feeling abnormal [Unknown]
  - Intentional dose omission [Unknown]
  - Decreased appetite [Unknown]
  - Nausea [Unknown]
